FAERS Safety Report 9796383 (Version 3)
Quarter: 2015Q3

REPORT INFORMATION
  Report Type: Spontaneous
  Country: US (occurrence: US)
  Receive Date: 20140103
  Receipt Date: 20150921
  Transmission Date: 20151125
  Serious: Yes (Other)
  Sender: FDA-Public Use
  Company Number: US-GLAXOSMITHKLINE-A1055214A

PATIENT
  Age: 52 Year
  Sex: Female

DRUGS (2)
  1. BENLYSTA [Suspect]
     Active Substance: BELIMUMAB
     Indication: SYSTEMIC LUPUS ERYTHEMATOSUS
     Dosage: EVERY 28 DAYS
     Route: 042
     Dates: start: 20131028
  2. BENLYSTA [Suspect]
     Active Substance: BELIMUMAB
     Dosage: 1100 MG, U
     Dates: start: 20131018

REACTIONS (4)
  - Animal bite [Unknown]
  - Infected bite [Unknown]
  - Lymphadenopathy [Unknown]
  - Leukaemia [Unknown]

NARRATIVE: CASE EVENT DATE: 201312
